FAERS Safety Report 7261722-0 (Version None)
Quarter: 2011Q1

REPORT INFORMATION
  Report Type: 
  Country: None (occurrence: None)
  Receive Date: 20110130
  Receipt Date: 20101021
  Transmission Date: 20110831
  Serious: No
  Sender: FDA-Public Use
  Company Number: US-ABBOTT-10P-163-0680967-00

PATIENT
  Sex: Female
  Weight: 69.008 kg

DRUGS (8)
  1. HUMIRA [Suspect]
     Indication: PSORIATIC ARTHROPATHY
     Dates: start: 20101021
  2. FOLIC ACID [Concomitant]
     Indication: PRODUCT USED FOR UNKNOWN INDICATION
  3. NEXIUM [Concomitant]
     Indication: PRODUCT USED FOR UNKNOWN INDICATION
  4. ALBUTEROL [Concomitant]
     Indication: ASTHMA
  5. LOVENOX [Concomitant]
     Indication: COAGULOPATHY
  6. FLONASE [Concomitant]
     Indication: SINUSITIS
  7. LOPRESSOR [Concomitant]
     Indication: HYPERTENSION
  8. HUMIRA [Suspect]
     Dates: end: 20090101

REACTIONS (1)
  - CHRONIC SINUSITIS [None]
